FAERS Safety Report 23961000 (Version 1)
Quarter: 2024Q2

REPORT INFORMATION
  Report Type: Spontaneous
  Country: CA (occurrence: CA)
  Receive Date: 20240611
  Receipt Date: 20240611
  Transmission Date: 20240716
  Serious: No
  Sender: FDA-Public Use
  Company Number: CA-BoehringerIngelheim-2024-BI-030917

PATIENT
  Age: 71 Year
  Sex: Male

DRUGS (13)
  1. FLOMAX [Suspect]
     Active Substance: TAMSULOSIN HYDROCHLORIDE
     Indication: Hypertonic bladder
     Dosage: 0.4 MG, QD(0.4 MG, ONCE DAILY (AT BEDTIME)
     Route: 065
  2. FLOMAX [Suspect]
     Active Substance: TAMSULOSIN HYDROCHLORIDE
     Indication: Urge incontinence
  3. FLOMAX [Suspect]
     Active Substance: TAMSULOSIN HYDROCHLORIDE
     Indication: Fungal infection
  4. MIRABEGRON [Suspect]
     Active Substance: MIRABEGRON
     Indication: Hypertonic bladder
     Dosage: 50 MG, QD
     Route: 065
  5. MIRABEGRON [Suspect]
     Active Substance: MIRABEGRON
     Indication: Urge incontinence
  6. MIRABEGRON [Suspect]
     Active Substance: MIRABEGRON
     Indication: Fungal infection
  7. SYNJARDY [Concomitant]
     Active Substance: EMPAGLIFLOZIN\METFORMIN HYDROCHLORIDE
     Indication: Diabetes mellitus
     Dosage: UNK, BID(UNK UNK, EVERY 12 HOURS (SYNJARDY 12.5/1000)
     Route: 048
     Dates: end: 202303
  8. TOVIAZ [Concomitant]
     Active Substance: FESOTERODINE FUMARATE
     Indication: Hypertonic bladder
     Dosage: 4 MG, QD (4 MG, ONCE DAILY (AT BEDTIME)
     Route: 065
  9. TOVIAZ [Concomitant]
     Active Substance: FESOTERODINE FUMARATE
     Indication: Urge incontinence
  10. TOVIAZ [Concomitant]
     Active Substance: FESOTERODINE FUMARATE
     Indication: Fungal infection
  11. FINASTERIDE [Concomitant]
     Active Substance: FINASTERIDE
     Indication: Hypertonic bladder
     Dosage: 5 MG, QD
     Route: 065
  12. FINASTERIDE [Concomitant]
     Active Substance: FINASTERIDE
     Indication: Urge incontinence
  13. FINASTERIDE [Concomitant]
     Active Substance: FINASTERIDE
     Indication: Fungal infection

REACTIONS (1)
  - Off label use [Unknown]
